FAERS Safety Report 5934527-8 (Version None)
Quarter: 2008Q4

REPORT INFORMATION
  Report Type: 
  Country: None (occurrence: None)
  Receive Date: 20081029
  Receipt Date: 20081021
  Transmission Date: 20090506
  Serious: Yes (Death, Life-Threatening, Hospitalization)
  Sender: FDA-Public Use
  Company Number: US-WYE-H06488008

PATIENT
  Sex: Female

DRUGS (2)
  1. PREMPRO [Suspect]
     Dosage: 0.625MG/2.5MG QD
     Route: 048
     Dates: start: 20060901
  2. PROTONIX [Suspect]
     Route: 048
     Dates: start: 20060901

REACTIONS (1)
  - CEREBROVASCULAR ACCIDENT [None]
